FAERS Safety Report 21752328 (Version 1)
Quarter: 2022Q4

REPORT INFORMATION
  Report Type: Spontaneous
  Country: CN (occurrence: CN)
  Receive Date: 20221220
  Receipt Date: 20221220
  Transmission Date: 20230112
  Serious: Yes (Death, Hospitalization)
  Sender: FDA-Public Use
  Company Number: CN-PADAGIS-2022PAD01160

PATIENT

DRUGS (10)
  1. DOXORUBICIN HYDROCHLORIDE [Suspect]
     Active Substance: DOXORUBICIN HYDROCHLORIDE
     Indication: Haemophagocytic lymphohistiocytosis
     Dosage: 35 MG/M2, BIWEEKLY
     Route: 065
  2. ETOPOSIDE [Concomitant]
     Active Substance: ETOPOSIDE
     Indication: Haemophagocytic lymphohistiocytosis
     Dosage: 75 MG/M2, BIWEEKLY
     Route: 065
  3. ETOPOSIDE [Concomitant]
     Active Substance: ETOPOSIDE
     Dosage: UNK (COPE REGIMEN)
     Route: 065
  4. METHYLPREDNISOLONE [Concomitant]
     Active Substance: METHYLPREDNISOLONE
     Indication: Haemophagocytic lymphohistiocytosis
     Dosage: 2 MG/KG FOR 3 DAYS
     Route: 065
  5. METHYLPREDNISOLONE [Concomitant]
     Active Substance: METHYLPREDNISOLONE
     Dosage: 0.75 MG/KG FOR 4 DAYS
     Route: 065
  6. METHYLPREDNISOLONE [Concomitant]
     Active Substance: METHYLPREDNISOLONE
     Dosage: 0.25 MG/KG FOR 3 DAYS
     Route: 065
  7. METHYLPREDNISOLONE [Concomitant]
     Active Substance: METHYLPREDNISOLONE
     Dosage: 0.1 MG/KG FOR 3 DAYS
     Route: 065
  8. GLYCYRRHIZA GLABRA\HERBALS [Concomitant]
     Active Substance: GLYCYRRHIZA GLABRA\HERBALS
     Indication: Hepatic function abnormal
     Dosage: UNK
     Route: 065
  9. ADEMETIONINE [Concomitant]
     Active Substance: ADEMETIONINE
     Indication: Hepatic function abnormal
     Dosage: UNK
     Route: 065
  10. ENTECAVIR [Concomitant]
     Active Substance: ENTECAVIR
     Indication: Viral infection
     Route: 048

REACTIONS (4)
  - Disease progression [Fatal]
  - Gastrointestinal toxicity [Unknown]
  - Myelosuppression [Unknown]
  - Product use in unapproved indication [Unknown]
